FAERS Safety Report 4935079-1 (Version None)
Quarter: 2006Q1

REPORT INFORMATION
  Report Type: 
  Country: None (occurrence: None)
  Receive Date: 20060303
  Receipt Date: 20060303
  Transmission Date: 20060701
  Serious: Yes (Other)
  Sender: FDA-Public Use
  Company Number: None

PATIENT
  Age: 66 Year
  Sex: Female
  Weight: 85.2762 kg

DRUGS (1)
  1. MACRO BID / NITROFURANTOIN / PROCTOR + GAMBLE [Suspect]
     Indication: CYSTITIS
     Dosage: 100 MG 2 X A DAY ORAL
     Route: 048
     Dates: start: 20050914, end: 20050924

REACTIONS (7)
  - CHILLS [None]
  - DYSPNOEA [None]
  - PRURITUS [None]
  - PYREXIA [None]
  - RASH GENERALISED [None]
  - SIMILAR REACTION ON PREVIOUS EXPOSURE TO DRUG [None]
  - UNEVALUABLE EVENT [None]
